FAERS Safety Report 6390175-X (Version None)
Quarter: 2009Q4

REPORT INFORMATION
  Report Type: 
  Country: None (occurrence: None)
  Receive Date: 20091005
  Receipt Date: 20091005
  Transmission Date: 20100525
  Serious: Yes (Hospitalization)
  Sender: FDA-Public Use
  Company Number: None

PATIENT
  Age: 75 Year
  Sex: Male

DRUGS (1)
  1. TERAZOSIN HCL [Suspect]
     Indication: BENIGN PROSTATIC HYPERPLASIA
     Dosage: 2 MG HS PO
     Route: 048
     Dates: start: 20070104, end: 20090819

REACTIONS (3)
  - HEART RATE INCREASED [None]
  - HYPOTENSION [None]
  - TRANSIENT ISCHAEMIC ATTACK [None]
